FAERS Safety Report 6693935-0 (Version None)
Quarter: 2010Q2

REPORT INFORMATION
  Report Type: 
  Country: None (occurrence: None)
  Receive Date: 20100423
  Receipt Date: 20100413
  Transmission Date: 20101027
  Serious: Yes (Other)
  Sender: FDA-Public Use
  Company Number: JP-PFIZER INC-2010041679

PATIENT
  Age: 57 Year
  Sex: Female

DRUGS (13)
  1. ZOLOFT [Suspect]
     Indication: DEPRESSION
     Dosage: 50 MG, 1X/DAY
     Route: 048
     Dates: start: 20091125
  2. CELTECT [Concomitant]
     Route: 048
  3. BENZALIN [Concomitant]
     Route: 048
  4. RILUTEK [Concomitant]
     Route: 048
  5. PANTOSIN [Concomitant]
     Route: 048
  6. CANDESARTAN CILEXETIL [Concomitant]
     Route: 048
  7. ASPARA K [Concomitant]
     Route: 048
  8. GASTER [Concomitant]
     Route: 048
  9. DAIOKANZOTO [Concomitant]
     Route: 048
  10. LEXOTAN [Concomitant]
     Route: 048
  11. NORVASC [Concomitant]
     Route: 048
  12. LOXONIN [Concomitant]
     Route: 048
  13. MUCOSTA [Concomitant]
     Route: 048

REACTIONS (4)
  - BLOOD PRESSURE INCREASED [None]
  - CHEST DISCOMFORT [None]
  - FLUSHING [None]
  - TACHYCARDIA [None]
